FAERS Safety Report 22332251 (Version 1)
Quarter: 2023Q2

REPORT INFORMATION
  Report Type: Spontaneous
  Country: PL (occurrence: PL)
  Receive Date: 20230517
  Receipt Date: 20230517
  Transmission Date: 20230722
  Serious: Yes (Other)
  Sender: FDA-Public Use
  Company Number: None

PATIENT
  Age: 80 Year
  Sex: Female

DRUGS (3)
  1. OMEPRAZOLE [Suspect]
     Active Substance: OMEPRAZOLE
     Indication: Abdominal pain upper
     Dosage: UNK UNK, QD (DOSAGE: 1-0-0; TOOK IN THE MORNING)
     Route: 048
     Dates: start: 20201229, end: 20201229
  2. BISOPROLOL [Concomitant]
     Active Substance: BISOPROLOL
     Indication: Cardiac disorder
     Dosage: UNK UNK, QD (DOSAGE: 1-0-0; FOR A FEW YEARS)
     Route: 048
  3. ULGASTRAN [Concomitant]
     Indication: Product used for unknown indication
     Dosage: UNK UNK, QD (DOSAGE 1-0-0; NEWLY)
     Route: 048

REACTIONS (7)
  - Feeling hot [Recovered/Resolved]
  - Dyspnoea [Recovered/Resolved]
  - Nausea [Recovered/Resolved]
  - Lip oedema [Recovered/Resolved]
  - Palpitations [Recovered/Resolved]
  - Vomiting [Recovered/Resolved]
  - Diarrhoea [Recovered/Resolved]

NARRATIVE: CASE EVENT DATE: 20201229
